FAERS Safety Report 8069255-9 (Version None)
Quarter: 2012Q1

REPORT INFORMATION
  Report Type: 
  Country: None (occurrence: None)
  Receive Date: 20120118
  Receipt Date: 20120109
  Transmission Date: 20120608
  Serious: Yes (Death)
  Sender: FDA-Public Use
  Company Number: JPI-P-014783

PATIENT
  Age: 63 Year
  Sex: Male

DRUGS (4)
  1. XYREM [Suspect]
     Indication: PRODUCT USED FOR UNKNOWN INDICATION
     Dosage: 4.5 GM (2.25 GM, 2 IN 1 D), ORAL, 5.5 GM (2.75 MG, 2 IN 1 D), ORAL, 8 GM (4 GM, 2 IN 1 D), ORAL, 9 G
     Route: 048
     Dates: start: 20030331, end: 20030101
  2. XYREM [Suspect]
     Indication: PRODUCT USED FOR UNKNOWN INDICATION
     Dosage: 4.5 GM (2.25 GM, 2 IN 1 D), ORAL, 5.5 GM (2.75 MG, 2 IN 1 D), ORAL, 8 GM (4 GM, 2 IN 1 D), ORAL, 9 G
     Route: 048
     Dates: start: 20030813, end: 20040923
  3. XYREM [Suspect]
     Indication: PRODUCT USED FOR UNKNOWN INDICATION
     Dosage: 4.5 GM (2.25 GM, 2 IN 1 D), ORAL, 5.5 GM (2.75 MG, 2 IN 1 D), ORAL, 8 GM (4 GM, 2 IN 1 D), ORAL, 9 G
     Route: 048
     Dates: start: 20030423, end: 20030101
  4. XYREM [Suspect]
     Indication: PRODUCT USED FOR UNKNOWN INDICATION
     Dosage: 4.5 GM (2.25 GM, 2 IN 1 D), ORAL, 5.5 GM (2.75 MG, 2 IN 1 D), ORAL, 8 GM (4 GM, 2 IN 1 D), ORAL, 9 G
     Route: 048
     Dates: start: 20030717, end: 20030101

REACTIONS (2)
  - ANEURYSM [None]
  - ARTERIOSCLEROSIS [None]
